FAERS Safety Report 12590820 (Version 1)
Quarter: 2016Q3

REPORT INFORMATION
  Report Type: Spontaneous
  Country: US (occurrence: US)
  Receive Date: 20160726
  Receipt Date: 20160726
  Transmission Date: 20161109
  Serious: Yes (Other)
  Sender: FDA-Public Use
  Company Number: US-CIPLA LTD.-2016US09708

PATIENT

DRUGS (9)
  1. CALCIUM [Concomitant]
     Active Substance: CALCIUM
     Indication: MINERAL SUPPLEMENTATION
     Dosage: 600 MG, QD
     Route: 048
  2. GABAPENTIN. [Suspect]
     Active Substance: GABAPENTIN
     Indication: NEUROPATHY PERIPHERAL
     Dosage: UNK
     Route: 065
     Dates: start: 2001, end: 2001
  3. GABAPENTIN. [Suspect]
     Active Substance: GABAPENTIN
     Dosage: EXTRA TWO CAPSULES FOR TWO NIGHTS
     Route: 048
     Dates: start: 201605, end: 201605
  4. FISH OIL [Concomitant]
     Active Substance: FISH OIL
     Indication: HYPERCHOLESTEROLAEMIA
     Dosage: 1200 MG, QD
     Route: 048
  5. VITAMIN B12 [Concomitant]
     Active Substance: CYANOCOBALAMIN
     Indication: SUPPLEMENTATION THERAPY
     Dosage: 2500 MCG, QD
     Route: 048
  6. GABAPENTIN. [Suspect]
     Active Substance: GABAPENTIN
     Indication: RESTLESS LEGS SYNDROME
     Dosage: 300 MG, TID
     Route: 048
     Dates: start: 2005
  7. OPDIVO [Suspect]
     Active Substance: NIVOLUMAB
     Indication: LUNG NEOPLASM MALIGNANT
     Dosage: UNK
     Route: 065
  8. GABAPENTIN. [Suspect]
     Active Substance: GABAPENTIN
     Dosage: 300 MG, TID
     Route: 048
     Dates: start: 2016
  9. MAGNESIUM [Concomitant]
     Active Substance: MAGNESIUM
     Indication: MUSCLE SPASMS
     Dosage: 250 MG, QD
     Route: 048

REACTIONS (8)
  - Aortic bypass [None]
  - Insomnia [Not Recovered/Not Resolved]
  - Condition aggravated [Recovering/Resolving]
  - Abnormal behaviour [Recovered/Resolved]
  - Post procedural complication [None]
  - Lung neoplasm malignant [Recovering/Resolving]
  - Neuropathy peripheral [None]
  - Drug ineffective [Unknown]

NARRATIVE: CASE EVENT DATE: 2015
